FAERS Safety Report 6149628-1 (Version None)
Quarter: 2009Q2

REPORT INFORMATION
  Report Type: 
  Country: None (occurrence: None)
  Receive Date: 20090407
  Receipt Date: 20090407
  Transmission Date: 20091009
  Serious: Yes (Hospitalization)
  Sender: FDA-Public Use
  Company Number: None

PATIENT
  Age: 70 Year
  Sex: Male
  Weight: 93 kg

DRUGS (11)
  1. GEMCITABINE HCL [Suspect]
     Indication: NON-SMALL CELL LUNG CANCER STAGE IV
     Dosage: 400 MG/M2 Q2 WEEKS IV
     Route: 042
     Dates: start: 20090226
  2. PEMETREXED [Suspect]
     Indication: NON-SMALL CELL LUNG CANCER STAGE IV
     Dosage: 1200 MG/M2 Q2 WEEKS IV
     Route: 042
     Dates: start: 20090226
  3. METOPROLOL TARTRATE [Concomitant]
  4. PROTONIX [Concomitant]
  5. LIPITOR [Concomitant]
  6. ASPIRIN [Concomitant]
  7. BENICAR [Concomitant]
  8. FOLIC ACID [Concomitant]
  9. NORCO [Concomitant]
  10. COLACE [Concomitant]
  11. BEVACIZUMAB [Suspect]
     Indication: NON-SMALL CELL LUNG CANCER STAGE IV
     Dosage: 10 MG/KG
     Dates: start: 20090226

REACTIONS (2)
  - PATHOLOGICAL FRACTURE [None]
  - SPINAL FRACTURE [None]
